FAERS Safety Report 8142383-5 (Version None)
Quarter: 2012Q1

REPORT INFORMATION
  Report Type: 
  Country: None (occurrence: None)
  Receive Date: 20120216
  Receipt Date: 20120209
  Transmission Date: 20120608
  Serious: Yes (Hospitalization, Other)
  Sender: FDA-Public Use
  Company Number: PHEH2012US003474

PATIENT
  Sex: Male

DRUGS (19)
  1. NORVASC [Suspect]
     Dosage: 5 MG, QD
  2. ASPIRIN [Concomitant]
  3. NIACIN [Concomitant]
     Dosage: 500 MG, UNK
  4. GILENYA [Suspect]
     Dosage: 0.5 MG, QD
     Dates: start: 20110510
  5. DIOVAN [Suspect]
     Dosage: 80MG IN THE MORNING AND 160MG AT BEDTIME DAILY
     Dates: end: 20110819
  6. DIOVAN [Suspect]
     Dosage: 80 MG, QD
  7. AMPYRA [Suspect]
     Dates: end: 20110802
  8. KEPPRA [Suspect]
     Dosage: 750 MG, BID
  9. ASPIRIN [Concomitant]
     Dosage: 81 MG, QD
  10. ARICEPT [Suspect]
     Dates: end: 20110802
  11. CALCIUM [Concomitant]
     Dosage: 600 MG, TID
  12. NORVASC [Suspect]
     Dosage: 2.5 MG, QHS
     Dates: start: 20110830
  13. IMURAN [Suspect]
  14. AVAPRO [Suspect]
     Dosage: 150 MG, QD
  15. BACLOFEN [Concomitant]
     Dosage: 15 MG, 5QD
  16. EDARBI [Suspect]
     Dosage: 80 MG, UNK
  17. LIPITOR [Concomitant]
     Dosage: 10 MG, QD
  18. FLONASE [Concomitant]
  19. TIZANIDINE HCL [Concomitant]
     Dosage: 6 MG QID+8 MG QHS

REACTIONS (3)
  - CONVULSION [None]
  - BLOOD PRESSURE INCREASED [None]
  - LIVER FUNCTION TEST ABNORMAL [None]
